FAERS Safety Report 6314571-1 (Version None)
Quarter: 2009Q3

REPORT INFORMATION
  Report Type: 
  Country: None (occurrence: None)
  Receive Date: 20090819
  Receipt Date: 20090813
  Transmission Date: 20100115
  Serious: Yes (Hospitalization, Disabling)
  Sender: FDA-Public Use
  Company Number: PHHO2006DE04175

PATIENT
  Sex: Female

DRUGS (5)
  1. AMN107 AMN+CAP [Suspect]
     Indication: CHRONIC MYELOID LEUKAEMIA
     Dosage: 600 MG, UNK
     Route: 048
     Dates: start: 20040907, end: 20080318
  2. PRAVASTATIN [Concomitant]
     Indication: HYPERCHOLESTEROLAEMIA
  3. BELOC-ZOK [Concomitant]
  4. NEOTRI [Concomitant]
     Indication: HYPERTENSION
  5. CORVATARD [Concomitant]
     Indication: CORONARY ARTERY DISEASE

REACTIONS (30)
  - ACUTE MYOCARDIAL INFARCTION [None]
  - ANGIOPLASTY [None]
  - ARTERIAL OCCLUSIVE DISEASE [None]
  - ARTERIAL REPAIR [None]
  - ARTERIAL STENOSIS LIMB [None]
  - ARTERIAL THERAPEUTIC PROCEDURE [None]
  - ATRIOVENTRICULAR BLOCK COMPLETE [None]
  - BRADYCARDIA [None]
  - CARDIAC PACEMAKER INSERTION [None]
  - CATHETERISATION CARDIAC [None]
  - CHEST PAIN [None]
  - CORONARY ANGIOPLASTY [None]
  - CORONARY ARTERIAL STENT INSERTION [None]
  - CORONARY ARTERY DISEASE [None]
  - CORONARY ARTERY STENOSIS [None]
  - DEBRIDEMENT [None]
  - DYSPNOEA [None]
  - ECG SIGNS OF MYOCARDIAL ISCHAEMIA [None]
  - ELECTROCARDIOGRAM ST SEGMENT DEPRESSION [None]
  - ENDARTERECTOMY [None]
  - IMPAIRED HEALING [None]
  - MYOCARDIAL ISCHAEMIA [None]
  - NECROSIS [None]
  - PERIPHERAL ARTERIAL OCCLUSIVE DISEASE [None]
  - RESPIRATORY FAILURE [None]
  - SURGERY [None]
  - TROPONIN T INCREASED [None]
  - VASCULAR GRAFT [None]
  - WOUND HAEMORRHAGE [None]
  - WOUND SEPSIS [None]
